FAERS Safety Report 4698575-0 (Version None)
Quarter: 2005Q2

REPORT INFORMATION
  Report Type: 
  Country: None (occurrence: None)
  Receive Date: 20050622
  Receipt Date: 20050610
  Transmission Date: 20051028
  Serious: Yes (Other)
  Sender: FDA-Public Use
  Company Number: US015434

PATIENT
  Sex: Male

DRUGS (1)
  1. GABITRIL [Suspect]
     Dosage: 15 TAB CAP ONCE; ORAL
     Route: 048
     Dates: start: 20050111

REACTIONS (6)
  - ABNORMAL BEHAVIOUR [None]
  - AGGRESSION [None]
  - DRUG ABUSER [None]
  - DRUG TOXICITY [None]
  - LOSS OF CONSCIOUSNESS [None]
  - OVERDOSE [None]
